FAERS Safety Report 16133388 (Version 2)
Quarter: 2019Q2

REPORT INFORMATION
  Report Type: Report from Study
  Country: None (occurrence: CA)
  Receive Date: 20190329
  Receipt Date: 20190622
  Transmission Date: 20190711
  Serious: Yes (Other)
  Sender: FDA-Public Use
  Company Number: CA-ABBVIE-19S-028-2724983-00

PATIENT
  Age: 75 Year
  Sex: Male

DRUGS (2)
  1. LUPRON DEPOT [Suspect]
     Active Substance: LEUPROLIDE ACETATE
     Indication: PROSTATE CANCER
     Route: 030
     Dates: start: 20181227
  2. LUPRON DEPOT [Suspect]
     Active Substance: LEUPROLIDE ACETATE
     Route: 030

REACTIONS (6)
  - Pneumonia [Recovered/Resolved]
  - Post procedural complication [Recovered/Resolved]
  - Dysuria [Recovered/Resolved]
  - Pollakiuria [Recovered/Resolved]
  - Hot flush [Unknown]
  - Radiotherapy [Unknown]

NARRATIVE: CASE EVENT DATE: 2019
